FAERS Safety Report 4868044-3 (Version None)
Quarter: 2005Q4

REPORT INFORMATION
  Report Type: 
  Country: None (occurrence: None)
  Receive Date: 20051229
  Receipt Date: 20051219
  Transmission Date: 20060501
  Serious: Yes (Death)
  Sender: FDA-Public Use
  Company Number: AU-ROCHE-429061

PATIENT
  Age: 9 Year
  Sex: Female
  Weight: 35 kg

DRUGS (16)
  1. VESANOID [Suspect]
     Indication: DRUG USE FOR UNKNOWN INDICATION
     Route: 048
     Dates: start: 20040407, end: 20040412
  2. ROCEPHIN [Suspect]
     Indication: AGRANULOCYTOSIS
     Route: 065
     Dates: start: 20040406, end: 20040410
  3. METHOTREXATE [Suspect]
     Indication: DRUG USE FOR UNKNOWN INDICATION
     Route: 065
     Dates: start: 20040406
  4. TARGOCID [Suspect]
     Indication: AGRANULOCYTOSIS
     Route: 042
     Dates: start: 20040406, end: 20040410
  5. DAUNORUBICIN [Suspect]
     Indication: DRUG USE FOR UNKNOWN INDICATION
     Dosage: FORM REPORTED AS INJECTION, INTRAVENOUS INFUSION.
     Route: 042
     Dates: start: 20040409, end: 20040412
  6. CYTARABINE [Suspect]
     Indication: DRUG USE FOR UNKNOWN INDICATION
     Dosage: FORM REPORTED AS INJECTION, INFUSION SOLUTION.
     Route: 042
     Dates: start: 20040409, end: 20040412
  7. VANCOMYCIN HYDROCHLORIDE [Suspect]
     Indication: AGRANULOCYTOSIS
     Route: 065
     Dates: start: 20040410
  8. TOBRAMYCIN [Suspect]
     Indication: AGRANULOCYTOSIS
     Route: 065
     Dates: start: 20040406, end: 20040410
  9. ALLOPURINOL [Concomitant]
  10. FLUOXETINE [Concomitant]
  11. MEROPENEM [Concomitant]
  12. ONDANSETRON [Concomitant]
  13. MAXOLON [Concomitant]
  14. PHENERGAN [Concomitant]
  15. ZOFRAN [Concomitant]
  16. PROBITOR [Concomitant]

REACTIONS (5)
  - DISSEMINATED INTRAVASCULAR COAGULATION [None]
  - HAEMODIALYSIS [None]
  - MULTI-ORGAN FAILURE [None]
  - PULMONARY OEDEMA [None]
  - RESPIRATORY DISTRESS [None]
